FAERS Safety Report 12822375 (Version 1)
Quarter: 2016Q4

REPORT INFORMATION
  Report Type: Report from Study
  Country: US (occurrence: US)
  Receive Date: 20161006
  Receipt Date: 20161006
  Transmission Date: 20170207
  Serious: No
  Sender: FDA-Public Use
  Company Number: US-THERATECHNOLOGIES, INC.-TH-2016-00119

PATIENT
  Age: 54 Year
  Sex: Male
  Weight: 97.61 kg

DRUGS (4)
  1. ATRIPLA [Concomitant]
     Active Substance: EFAVIRENZ\EMTRICITABINE\TENOFOVIR DISOPROXIL FUMARATE
     Indication: HIV INFECTION
     Dosage: UNSPECIFIED
  2. HYDROCHLOROTHIAZIDE. [Concomitant]
     Active Substance: HYDROCHLOROTHIAZIDE
     Indication: PROPHYLAXIS
     Dosage: UNSPECIFIED
  3. ACEON [Concomitant]
     Active Substance: PERINDOPRIL ERBUMINE
     Indication: BLOOD CHOLESTEROL
     Dosage: UNSPECIFIED
  4. EGRIFTA [Suspect]
     Active Substance: TESAMORELIN
     Indication: LIPOHYPERTROPHY
     Dosage: UNSPECIFIED
     Dates: start: 201606, end: 20160918

REACTIONS (2)
  - Paraesthesia [Recovering/Resolving]
  - Arthralgia [Recovering/Resolving]

NARRATIVE: CASE EVENT DATE: 201607
